FAERS Safety Report 8342446-5 (Version None)
Quarter: 2012Q2

REPORT INFORMATION
  Report Type: 
  Country: None (occurrence: None)
  Receive Date: 20120508
  Receipt Date: 20120426
  Transmission Date: 20120825
  Serious: No
  Sender: FDA-Public Use
  Company Number: US-BIOGENIDEC-2012BI014702

PATIENT
  Age: 45 Year
  Sex: Female

DRUGS (2)
  1. AVONEX [Concomitant]
     Indication: MULTIPLE SCLEROSIS
     Route: 030
  2. TYSABRI [Suspect]
     Indication: MULTIPLE SCLEROSIS
     Route: 042
     Dates: start: 20110801, end: 20120426

REACTIONS (7)
  - NAUSEA [None]
  - TACHYCARDIA [None]
  - THROAT IRRITATION [None]
  - RETCHING [None]
  - HEADACHE [None]
  - THROAT TIGHTNESS [None]
  - HYPERSENSITIVITY [None]
